FAERS Safety Report 13019113 (Version 1)
Quarter: 2016Q4

REPORT INFORMATION
  Report Type: Spontaneous
  Country: US (occurrence: US)
  Receive Date: 20161212
  Receipt Date: 20161212
  Transmission Date: 20170207
  Serious: No
  Sender: FDA-Public Use
  Company Number: US-ROCHE-1833514

PATIENT
  Age: 63 Year
  Sex: Female
  Weight: 49.9 kg

DRUGS (10)
  1. CLONIDINE. [Concomitant]
     Active Substance: CLONIDINE
     Indication: BLOOD PRESSURE MEASUREMENT
     Dosage: HER BLOOD PRESSURE DROPS WAY TOO LOW WITH 3 TABLETS AND SHE IS NOT FUNCTIONAL.?TAKING AS NEEDED, SHE
     Route: 048
  2. VALIUM [Suspect]
     Active Substance: DIAZEPAM
     Indication: STRESS
  3. VALIUM [Suspect]
     Active Substance: DIAZEPAM
     Indication: ANXIETY
     Dosage: STARTED COULPE OF YEARS AGO
     Route: 048
  4. ADVIL PM [Suspect]
     Active Substance: DIPHENHYDRAMINE CITRATE\IBUPROFEN
     Indication: PAIN
     Dosage: AT NIGHT
     Route: 048
  5. DYCLONINE [Concomitant]
     Active Substance: DYCLONINE
     Indication: IRRITABLE BOWEL SYNDROME
     Route: 065
  6. NEURONTIN [Concomitant]
     Active Substance: GABAPENTIN
  7. ADVIL PM [Suspect]
     Active Substance: DIPHENHYDRAMINE CITRATE\IBUPROFEN
     Indication: SLEEP DISORDER
  8. DYCLONINE [Concomitant]
     Active Substance: DYCLONINE
     Route: 065
  9. LEVOTHYROXIN [Concomitant]
     Active Substance: LEVOTHYROXINE
     Indication: HYPOTHYROIDISM
     Dosage: IN THE MORNING BEFORE BREAKFAST, STARTED 15 YEARS AGO
     Route: 048
  10. HYOSCYAMINE. [Concomitant]
     Active Substance: HYOSCYAMINE
     Indication: IRRITABLE BOWEL SYNDROME
     Dosage: STARTED USING THE PRODUCT A COUPLE MONTHS AGO.
     Route: 060

REACTIONS (2)
  - Laceration [Unknown]
  - Wrong technique in product usage process [Unknown]

NARRATIVE: CASE EVENT DATE: 20160913
